FAERS Safety Report 24602070 (Version 1)
Quarter: 2024Q4

REPORT INFORMATION
  Report Type: Spontaneous
  Country: DE (occurrence: DE)
  Receive Date: 20241111
  Receipt Date: 20241111
  Transmission Date: 20250115
  Serious: Yes (Hospitalization)
  Sender: SANDOZ
  Company Number: DE-BFARM-19009024

PATIENT
  Age: 66 Year
  Sex: Female
  Weight: 68 kg

DRUGS (9)
  1. CEFUROXIME AXETIL [Suspect]
     Active Substance: CEFUROXIME AXETIL
     Indication: Cystitis noninfective
     Dosage: UNK
     Route: 065
     Dates: start: 201904
  2. CIPROFLOXACIN [Suspect]
     Active Substance: CIPROFLOXACIN
     Dosage: 1000 MG, QD, INSGESAMT 14 TABLETTEN
     Route: 048
     Dates: start: 201311, end: 201311
  3. CIPROFLOXACIN [Suspect]
     Active Substance: CIPROFLOXACIN
     Indication: Bronchitis
     Dosage: 1000 MG, QD
     Route: 048
     Dates: start: 201902, end: 201902
  4. CIPROFLOXACIN HYDROCHLORIDE [Suspect]
     Active Substance: CIPROFLOXACIN HYDROCHLORIDE
     Indication: Bronchitis
     Dosage: 2 DF (2 PACKUNGEN)
     Route: 065
  5. COTRIM [Suspect]
     Active Substance: SULFAMETHOXAZOLE\TRIMETHOPRIM
     Indication: Cystitis noninfective
     Dosage: UNK
     Route: 065
     Dates: start: 201812
  6. LEVOFLOXACIN [Suspect]
     Active Substance: LEVOFLOXACIN
     Indication: Bronchitis
     Dosage: 500 MG, QD, INSGESAMT 7 TABLETTEN
     Route: 048
     Dates: start: 201811, end: 201811
  7. OFLOXACIN [Suspect]
     Active Substance: OFLOXACIN
     Indication: Cystitis noninfective
     Dosage: 2 DF (2 PACKUNGEN)
     Route: 065
  8. OFLOXACIN [Suspect]
     Active Substance: OFLOXACIN
     Dosage: UNK
     Route: 065
     Dates: start: 201812
  9. OFLOXACIN [Suspect]
     Active Substance: OFLOXACIN
     Dosage: UNK (2 PACKUNGEN)
     Route: 065
     Dates: start: 201810

REACTIONS (18)
  - Fibromyalgia [Unknown]
  - Muscular weakness [Unknown]
  - Illusion [Unknown]
  - General physical health deterioration [Unknown]
  - Presyncope [Unknown]
  - Tendon disorder [Unknown]
  - Tendon disorder [Unknown]
  - Formication [Unknown]
  - Arthralgia [Unknown]
  - Musculoskeletal pain [Unknown]
  - Back pain [Unknown]
  - Tendon rupture [Unknown]
  - Pain in extremity [Unknown]
  - Pain in extremity [Unknown]
  - Pain in extremity [Unknown]
  - Anxiety [Unknown]
  - Arthralgia [Unknown]
  - Arthralgia [Unknown]

NARRATIVE: CASE EVENT DATE: 20190101
